FAERS Safety Report 20694068 (Version 1)
Quarter: 2022Q2

REPORT INFORMATION
  Report Type: Spontaneous
  Country: NL (occurrence: NL)
  Receive Date: 20220411
  Receipt Date: 20220411
  Transmission Date: 20220720
  Serious: Yes (Hospitalization)
  Sender: FDA-Public Use
  Company Number: None

PATIENT
  Sex: Male
  Weight: 130 kg

DRUGS (1)
  1. PRADAXA [Suspect]
     Active Substance: DABIGATRAN ETEXILATE MESYLATE
     Indication: Implantable defibrillator insertion
     Dosage: 2X PER DAG EEN CAPSULE.
     Dates: start: 201602, end: 20200220

REACTIONS (2)
  - Syncope [Recovered/Resolved]
  - Dizziness postural [Recovered/Resolved]
